FAERS Safety Report 7641507-3 (Version None)
Quarter: 2011Q3

REPORT INFORMATION
  Report Type: 
  Country: None (occurrence: None)
  Receive Date: 20110727
  Receipt Date: 20110727
  Transmission Date: 20111222
  Serious: Yes (Other)
  Sender: FDA-Public Use
  Company Number: None

PATIENT
  Sex: Female

DRUGS (1)
  1. PROLIA [Suspect]
     Dosage: 60MG Q6MONTHS SQ
     Route: 058
     Dates: start: 20110126

REACTIONS (1)
  - PAIN [None]
